FAERS Safety Report 8940617 (Version 2)
Quarter: 2013Q1

REPORT INFORMATION
  Report Type: Spontaneous
  Country: JP (occurrence: JP)
  Receive Date: 20121203
  Receipt Date: 20130221
  Transmission Date: 20140127
  Serious: Yes (Death)
  Sender: FDA-Public Use
  Company Number: PHHY2012JP110568

PATIENT
  Age: 80 Year
  Sex: Male

DRUGS (4)
  1. EXELON PATCH [Suspect]
     Indication: DEMENTIA ALZHEIMER^S TYPE
     Dosage: 4.5 MG, DAILY
     Route: 062
     Dates: start: 20121022, end: 20121118
  2. EXELON PATCH [Suspect]
     Dosage: 9 MG, DAILY
     Route: 062
     Dates: start: 20121119, end: 20121126
  3. BLOPRESS [Concomitant]
     Dosage: 8 MG, UNK
     Route: 048
     Dates: start: 20121031
  4. METILDIGOXIN [Concomitant]
     Dosage: 0.05 MG, UNK
     Route: 048
     Dates: start: 20121031

REACTIONS (2)
  - Marasmus [Fatal]
  - Dysphagia [Unknown]
